FAERS Safety Report 13937048 (Version 2)
Quarter: 2017Q4

REPORT INFORMATION
  Report Type: Spontaneous
  Country: JP (occurrence: JP)
  Receive Date: 20170905
  Receipt Date: 20171110
  Transmission Date: 20180320
  Serious: Yes (Death, Hospitalization)
  Sender: FDA-Public Use
  Company Number: JP-FERRINGPH-2017FE02739

PATIENT

DRUGS (12)
  1. LANSOPRAZOLE. [Concomitant]
     Active Substance: LANSOPRAZOLE
     Dosage: 15 MG, DAILY
     Route: 048
  2. ACTOS [Concomitant]
     Active Substance: PIOGLITAZONE HYDROCHLORIDE
     Dosage: 15 MG, DAILY
     Route: 048
  3. ABRAXANE [Concomitant]
     Active Substance: PACLITAXEL
     Route: 042
  4. GEMZAR [Concomitant]
     Active Substance: GEMCITABINE HYDROCHLORIDE
     Route: 042
  5. MINIRINMELT [Suspect]
     Active Substance: DESMOPRESSIN ACETATE
     Indication: DIABETES INSIPIDUS
     Dosage: 120 ?G, 2 TIMES DAILY
     Route: 048
     Dates: start: 201610
  6. MINIRINMELT [Suspect]
     Active Substance: DESMOPRESSIN ACETATE
     Dosage: 120 ?G, 1 TIME DAILY
     Route: 048
     Dates: start: 201401, end: 201609
  7. DESMOPRESSIN KYOWA [Suspect]
     Active Substance: DESMOPRESSIN
  8. BASEN                              /01290601/ [Concomitant]
     Active Substance: VOGLIBOSE
     Dosage: 0.9 MG, DAILY
     Route: 048
  9. NORVASC [Concomitant]
     Active Substance: AMLODIPINE BESYLATE
     Dosage: 5 MG, DAILY
     Route: 048
  10. CORTRIL [Concomitant]
     Active Substance: HYDROCORTISONE
     Dosage: 40 MG, DAILY
     Route: 048
  11. SUREPOST [Concomitant]
     Active Substance: REPAGLINIDE
     Dosage: 0.75 MG, DAILY
     Route: 048
  12. THYRADIN-S [Concomitant]
     Active Substance: LEVOTHYROXINE
     Dosage: 75 ?G, DAILY
     Route: 048

REACTIONS (4)
  - Death [Fatal]
  - Hypoglycaemia [Recovered/Resolved]
  - Circumstance or information capable of leading to medication error [Unknown]
  - Depressed level of consciousness [Recovered/Resolved]

NARRATIVE: CASE EVENT DATE: 201610
